FAERS Safety Report 7481699-2 (Version None)
Quarter: 2011Q2

REPORT INFORMATION
  Report Type: 
  Country: None (occurrence: None)
  Receive Date: 20110516
  Receipt Date: 20110509
  Transmission Date: 20111010
  Serious: Yes (Other)
  Sender: FDA-Public Use
  Company Number: DE-ROCHE-776923

PATIENT
  Sex: Female

DRUGS (1)
  1. XELODA [Suspect]
     Indication: BREAST CANCER
     Dosage: WITH BREAK AFTER TWO WEEKS
     Route: 048
     Dates: start: 20100301, end: 20110301

REACTIONS (6)
  - EYE DISORDER [None]
  - LACRIMATION INCREASED [None]
  - LACRIMAL DISORDER [None]
  - VISUAL ACUITY REDUCED [None]
  - DIPLOPIA [None]
  - VISUAL IMPAIRMENT [None]
